FAERS Safety Report 22036510 (Version 1)
Quarter: 2023Q1

REPORT INFORMATION
  Report Type: Spontaneous
  Country: FR (occurrence: FR)
  Receive Date: 20230225
  Receipt Date: 20230225
  Transmission Date: 20230418
  Serious: Yes (Hospitalization)
  Sender: FDA-Public Use
  Company Number: FR-CHIESI-2023CHF00849

PATIENT
  Age: 7 Year
  Sex: Female

DRUGS (4)
  1. DEFERIPRONE [Suspect]
     Active Substance: DEFERIPRONE
     Indication: Congenital aplastic anaemia
     Dosage: 57 MILLIGRAM/KILOGRAM, QD
  2. DEFERIPRONE [Suspect]
     Active Substance: DEFERIPRONE
     Indication: Off label use
  3. DEFERIPRONE [Suspect]
     Active Substance: DEFERIPRONE
     Indication: Iron overload
  4. DEFERIPRONE [Suspect]
     Active Substance: DEFERIPRONE
     Indication: Transfusion

REACTIONS (4)
  - Agranulocytosis [Unknown]
  - Escherichia infection [Unknown]
  - Off label use [Recovered/Resolved]
  - Off label use [Recovered/Resolved]
